FAERS Safety Report 22911720 (Version 2)
Quarter: 2023Q4

REPORT INFORMATION
  Report Type: Report from Study
  Country: US (occurrence: US)
  Receive Date: 20230906
  Receipt Date: 20231013
  Transmission Date: 20240110
  Serious: Yes (Death, Other)
  Sender: FDA-Public Use
  Company Number: US-002147023-NVSC2023US192633

PATIENT
  Sex: Male

DRUGS (1)
  1. ENTRESTO [Suspect]
     Active Substance: SACUBITRIL\VALSARTAN
     Indication: Product used for unknown indication
     Dosage: UNK
     Route: 065

REACTIONS (9)
  - Death [Fatal]
  - Femur fracture [Unknown]
  - Delirium [Unknown]
  - Hypoxia [Unknown]
  - Pneumonia aspiration [Unknown]
  - Agitation [Unknown]
  - Mental status changes postoperative [Unknown]
  - Somnolence [Unknown]
  - Fall [Unknown]
